FAERS Safety Report 7658869-3 (Version None)
Quarter: 2011Q3

REPORT INFORMATION
  Report Type: 
  Country: None (occurrence: None)
  Receive Date: 20110802
  Receipt Date: 20110729
  Transmission Date: 20111222
  Serious: Yes (Hospitalization)
  Sender: FDA-Public Use
  Company Number: ZYD-11-AE-170

PATIENT
  Age: 71 Year
  Sex: Female

DRUGS (1)
  1. AMLODIPINE [Suspect]

REACTIONS (5)
  - URTICARIA [None]
  - BLISTER [None]
  - CONJUNCTIVAL EROSION [None]
  - RASH MACULO-PAPULAR [None]
  - RASH PRURITIC [None]
